FAERS Safety Report 23530776 (Version 1)
Quarter: 2024Q1

REPORT INFORMATION
  Report Type: Spontaneous
  Country: IN (occurrence: IN)
  Receive Date: 20240216
  Receipt Date: 20240216
  Transmission Date: 20240410
  Serious: Yes (Other)
  Sender: FDA-Public Use
  Company Number: IN-862174955-ML2024-00921

PATIENT
  Age: 26 Year
  Sex: Male

DRUGS (5)
  1. FLUOXETINE [Suspect]
     Active Substance: FLUOXETINE HYDROCHLORIDE
     Indication: Obsessive-compulsive disorder
     Dosage: AT NIGHT ON SOS BASIS WITH WEEKLY EXPOSURE AND RESPONSE PREVENTION THERAPY (ERP)
  2. FLUOXETINE [Suspect]
     Active Substance: FLUOXETINE HYDROCHLORIDE
  3. CLOMIPRAMINE [Suspect]
     Active Substance: CLOMIPRAMINE
     Indication: Obsessive-compulsive disorder
  4. CLOMIPRAMINE [Suspect]
     Active Substance: CLOMIPRAMINE
     Dosage: STARTED WITH 25 MG AND THEN INCREASED TO 50 MG WITHIN 5 DAYS
  5. CLONAZEPAM [Concomitant]
     Active Substance: CLONAZEPAM
     Indication: Obsessive-compulsive disorder
     Dosage: AT NIGHT ON SOS BASIS WITH WEEKLY EXPOSURE AND RESPONSE PREVENTION THERAPY (ERP)

REACTIONS (2)
  - Extrapyramidal disorder [Recovered/Resolved]
  - Drug interaction [Unknown]
